FAERS Safety Report 5089611-0 (Version None)
Quarter: 2006Q3

REPORT INFORMATION
  Report Type: 
  Country: None (occurrence: None)
  Receive Date: 20060822
  Receipt Date: 20060809
  Transmission Date: 20061208
  Serious: Yes (Hospitalization, Other)
  Sender: FDA-Public Use
  Company Number: 2005137941

PATIENT
  Age: 51 Year
  Sex: Female
  Weight: 51.7101 kg

DRUGS (18)
  1. SUTENT [Suspect]
     Indication: GASTROINTESTINAL STROMAL TUMOUR
     Dosage: 25 MG 25 MG, 1 IN 1 D), ORAL
     Route: 048
     Dates: start: 20050909
  2. RIFAXIMIN (RIFAXIMIN) [Concomitant]
  3. FIBERCON (POLYCARBOPHIL CALCIUM) [Concomitant]
  4. NEXIUM [Concomitant]
  5. ZELNORM [Concomitant]
  6. MILK OF MAGNESIA TAB [Concomitant]
  7. DURAGESIC-100 [Concomitant]
  8. ESTRADIOL [Concomitant]
  9. OXYCODONE (OXYCODONE) [Concomitant]
  10. MOTRIN (IBUIPROFEN) [Concomitant]
  11. ZOFRAN [Concomitant]
  12. PROMETHAZINE [Concomitant]
  13. SENOKOT [Concomitant]
  14. CLARITIN [Concomitant]
  15. VALIUM [Concomitant]
  16. TUMS (CALCIUM CARB0ONATE) [Concomitant]
  17. SYNTHROID [Concomitant]
  18. MORPHINE [Concomitant]

REACTIONS (5)
  - BACTERAEMIA [None]
  - BRADYCARDIA [None]
  - ESCHERICHIA INFECTION [None]
  - HYPOTENSION [None]
  - URINARY TRACT INFECTION [None]
